FAERS Safety Report 14919910 (Version 1)
Quarter: 2018Q2

REPORT INFORMATION
  Report Type: Spontaneous
  Country: US (occurrence: US)
  Receive Date: 20180521
  Receipt Date: 20180521
  Transmission Date: 20180711
  Serious: No
  Sender: FDA-Public Use
  Company Number: US-PFIZER INC-2018203463

PATIENT
  Sex: Male

DRUGS (2)
  1. CIPROFLOXACIN. [Suspect]
     Active Substance: CIPROFLOXACIN
     Indication: RESPIRATORY TRACT INFECTION
     Dosage: UNK
  2. ELIQUIS [Concomitant]
     Active Substance: APIXABAN

REACTIONS (1)
  - Drug ineffective [Unknown]
